FAERS Safety Report 24736655 (Version 2)
Quarter: 2024Q4

REPORT INFORMATION
  Report Type: Spontaneous
  Country: US (occurrence: US)
  Receive Date: 20241216
  Receipt Date: 20241216
  Transmission Date: 20250115
  Serious: Yes (Hospitalization)
  Sender: ROCHE
  Company Number: US-ROCHE-10000152243

PATIENT
  Age: 69 Year
  Sex: Male
  Weight: 83.91 kg

DRUGS (9)
  1. ACTEMRA [Suspect]
     Active Substance: TOCILIZUMAB
     Indication: Giant cell arteritis
     Route: 058
     Dates: start: 2021
  2. ACTEMRA [Suspect]
     Active Substance: TOCILIZUMAB
     Indication: Giant cell arteritis
  3. ATORVASTATIN [Concomitant]
     Active Substance: ATORVASTATIN
     Indication: Blood cholesterol increased
     Dosage: STARTED BEFORE ACTEMRA
     Route: 048
  4. METOPROLOL TARTRATE [Concomitant]
     Active Substance: METOPROLOL TARTRATE
     Indication: Hypertension
     Dosage: STARTED BEFORE ACTEMRA
     Route: 048
  5. LEVOTHYROXINE [Concomitant]
     Active Substance: LEVOTHYROXINE
     Dosage: STARTED BEFORE ACTEMRA
     Route: 048
  6. HUMULIN R [Concomitant]
     Active Substance: INSULIN HUMAN
     Indication: Diabetes mellitus
     Dosage: TAKES 5-10 UNITS BEFORE EACH MEAL ON A SLIDING SCALE; STARTED BEFORE ACTEMRA
     Route: 065
  7. LANTUS [Concomitant]
     Active Substance: INSULIN GLARGINE
     Indication: Diabetes mellitus
     Dosage: 12 UNITS; TAKES AT NIGHT, STARTED BEFORE ACTEMRA
     Route: 065
  8. ASPIRIN [Concomitant]
     Active Substance: ASPIRIN
     Route: 048
     Dates: start: 2011
  9. COPPER [Concomitant]
     Active Substance: COPPER
     Indication: Blood copper decreased
     Route: 048
     Dates: start: 2024

REACTIONS (4)
  - Wrong technique in product usage process [Unknown]
  - Device defective [Unknown]
  - Back pain [Unknown]
  - Product quality issue [Unknown]

NARRATIVE: CASE EVENT DATE: 20220101
